FAERS Safety Report 17207815 (Version 1)
Quarter: 2019Q4

REPORT INFORMATION
  Report Type: Spontaneous
  Country: DE (occurrence: DE)
  Receive Date: 20191227
  Receipt Date: 20191227
  Transmission Date: 20200122
  Serious: Yes (Other)
  Sender: FDA-Public Use
  Company Number: DE-PFIZER INC-2019554224

PATIENT
  Sex: Female
  Weight: 93 kg

DRUGS (5)
  1. REVLIMID [Suspect]
     Active Substance: LENALIDOMIDE
     Dosage: UNK
     Route: 065
     Dates: start: 201906
  2. ACIC [ACICLOVIR] [Suspect]
     Active Substance: ACYCLOVIR
     Dosage: UNK
     Route: 065
     Dates: start: 201811
  3. COTRIM [Suspect]
     Active Substance: SULFAMETHOXAZOLE\TRIMETHOPRIM
     Dosage: UNK
     Route: 065
     Dates: start: 201811
  4. MAXIM [DIENOGEST;ETHINYLESTRADIOL] [Suspect]
     Active Substance: DIENOGEST\ETHINYL ESTRADIOL
     Dosage: UNK
     Route: 065
  5. PREGABALIN. [Suspect]
     Active Substance: PREGABALIN
     Dosage: UNK
     Route: 065

REACTIONS (5)
  - Peripheral swelling [Unknown]
  - Tension [Unknown]
  - Muscular weakness [Unknown]
  - Venous thrombosis [Unknown]
  - Musculoskeletal stiffness [Unknown]

NARRATIVE: CASE EVENT DATE: 20190731
